FAERS Safety Report 8646247 (Version 2)
Quarter: 2012Q4

REPORT INFORMATION
  Report Type: 
  Country: US (occurrence: US)
  Receive Date: 20120702
  Receipt Date: 20120906
  Transmission Date: 20130627
  Serious: No
  Sender: FDA-Public Use
  Company Number: US-ASTRAZENECA-2012SE40846

PATIENT
  Age: 49 Year
  Sex: Male
  Weight: 62.6 kg

DRUGS (11)
  1. SEROQUEL [Suspect]
     Indication: DEPRESSION
     Route: 048
     Dates: start: 201111
  2. SEROQUEL [Suspect]
     Indication: DEPRESSION
     Route: 048
     Dates: start: 201111
  3. SEROQUEL [Suspect]
     Indication: DEPRESSION
     Route: 048
     Dates: start: 201201
  4. SEROQUEL [Suspect]
     Indication: DEPRESSION
     Dosage: CHEW HALF OF THE 25 MG TABLET
     Route: 048
     Dates: start: 201202
  5. MIRTAZAPINE [Concomitant]
     Indication: BIPOLAR DISORDER
  6. CLONAZEPAM [Concomitant]
  7. GABAPENTIN [Concomitant]
  8. CARBAMAZEPINE [Concomitant]
  9. ATROVENT [Concomitant]
  10. BECLOMETHASONE [Concomitant]
  11. QVAR [Concomitant]

REACTIONS (8)
  - Blood pressure increased [Unknown]
  - Nephrolithiasis [Recovered/Resolved]
  - Anxiety [Unknown]
  - Adverse event [Unknown]
  - Somnolence [Unknown]
  - Dizziness [Unknown]
  - Off label use [Unknown]
  - Drug ineffective for unapproved indication [Unknown]
